FAERS Safety Report 9030834 (Version 5)
Quarter: 2016Q3

REPORT INFORMATION
  Report Type: Report from Study
  Country: JP (occurrence: JP)
  Receive Date: 20130123
  Receipt Date: 20160826
  Transmission Date: 20161109
  Serious: Yes (Other)
  Sender: FDA-Public Use
  Company Number: JP-ROCHE-1181720

PATIENT
  Age: 71 Year
  Sex: Male

DRUGS (15)
  1. RANIBIZUMAB [Suspect]
     Active Substance: RANIBIZUMAB
     Route: 050
     Dates: start: 20120228
  2. RANIBIZUMAB [Suspect]
     Active Substance: RANIBIZUMAB
     Route: 050
     Dates: start: 20120605
  3. CRAVIT [Concomitant]
     Active Substance: LEVOFLOXACIN
     Route: 057
     Dates: start: 201206, end: 201206
  4. RANIBIZUMAB [Suspect]
     Active Substance: RANIBIZUMAB
     Route: 050
     Dates: start: 20110412, end: 20110412
  5. RANIBIZUMAB [Suspect]
     Active Substance: RANIBIZUMAB
     Route: 050
     Dates: start: 20111011
  6. CRAVIT [Concomitant]
     Active Substance: LEVOFLOXACIN
     Route: 057
     Dates: start: 201107, end: 201107
  7. CRAVIT [Concomitant]
     Active Substance: LEVOFLOXACIN
     Route: 057
     Dates: start: 201202, end: 201202
  8. RANIBIZUMAB [Suspect]
     Active Substance: RANIBIZUMAB
     Route: 050
     Dates: start: 20110719
  9. CRAVIT [Concomitant]
     Active Substance: LEVOFLOXACIN
     Route: 057
     Dates: start: 201103, end: 201103
  10. RANIBIZUMAB [Suspect]
     Active Substance: RANIBIZUMAB
     Indication: AGE-RELATED MACULAR DEGENERATION
     Route: 050
     Dates: start: 20110215
  11. HYDREA [Concomitant]
     Active Substance: HYDROXYUREA
     Indication: CHRONIC MYELOID LEUKAEMIA
     Route: 065
  12. CRAVIT [Concomitant]
     Active Substance: LEVOFLOXACIN
     Route: 057
     Dates: start: 201104, end: 201104
  13. CRAVIT [Concomitant]
     Active Substance: LEVOFLOXACIN
     Route: 057
     Dates: start: 201110, end: 201110
  14. RANIBIZUMAB [Suspect]
     Active Substance: RANIBIZUMAB
     Route: 050
     Dates: start: 20110315
  15. CRAVIT [Concomitant]
     Active Substance: LEVOFLOXACIN
     Route: 065
     Dates: start: 201102, end: 201102

REACTIONS (6)
  - Chorioretinal atrophy [Recovering/Resolving]
  - Visual acuity reduced [Unknown]
  - Visual field defect [Unknown]
  - Retinal exudates [Unknown]
  - Optic disc disorder [Unknown]
  - Macular degeneration [Not Recovered/Not Resolved]

NARRATIVE: CASE EVENT DATE: 201105
